FAERS Safety Report 5199083-3 (Version None)
Quarter: 2006Q4

REPORT INFORMATION
  Report Type: 
  Country: None (occurrence: None)
  Receive Date: 20060919
  Receipt Date: 20060512
  Transmission Date: 20070319
  Serious: Yes (Other)
  Sender: FDA-Public Use
  Company Number: HQWYE372917MAY06

PATIENT
  Age: 74 Year
  Sex: Female
  Weight: 69.01 kg

DRUGS (3)
  1. ADVIL [Suspect]
     Indication: PAIN
     Dosage: 4 LIQUI-GELS AS NEEDED, ORAL
     Route: 048
     Dates: start: 20050101
  2. SYNTHROID [Concomitant]
  3. FOSAMAX [Concomitant]

REACTIONS (2)
  - DYSPHAGIA [None]
  - RETCHING [None]
